FAERS Safety Report 4647798-5 (Version None)
Quarter: 2005Q2

REPORT INFORMATION
  Report Type: 
  Country: None (occurrence: None)
  Receive Date: 20050426
  Receipt Date: 20050413
  Transmission Date: 20051028
  Serious: Yes (Hospitalization)
  Sender: FDA-Public Use
  Company Number: 05P-167-0288051-01

PATIENT
  Age: 73 Year
  Sex: Female
  Weight: 96.6 kg

DRUGS (15)
  1. SIBUTRAMINE (BLINDED) (MERIDIA) (SIBUTRAMINE) [Suspect]
     Indication: OBESITY
     Dosage: 1 IN 1 D PER ORAL
     Route: 048
     Dates: start: 20031001, end: 20050120
  2. METFORMIN HCL [Concomitant]
  3. INSULIN [Concomitant]
  4. DIHYDROCODEINE BITARTRATE INJ [Concomitant]
  5. KETOPROFEN [Concomitant]
  6. FRUMIL [Concomitant]
  7. VALSARTAN [Concomitant]
  8. DOXAZOSIN [Concomitant]
  9. NITROGLYCERIN [Concomitant]
  10. ACETYL SALICYLIC ACID USP BAT [Concomitant]
  11. QUININE SULFATE [Concomitant]
  12. PANTOPRAZOLE SODIUM [Concomitant]
  13. ISHN [Concomitant]
  14. NICORANDIL [Concomitant]
  15. FRUMIL [Concomitant]

REACTIONS (8)
  - ANGINA PECTORIS [None]
  - CARDIAC FAILURE CONGESTIVE [None]
  - GASTRITIS [None]
  - HIATUS HERNIA [None]
  - IDIOPATHIC PULMONARY FIBROSIS [None]
  - INTERSTITIAL LUNG DISEASE [None]
  - IRON DEFICIENCY ANAEMIA [None]
  - PULMONARY FIBROSIS [None]
